FAERS Safety Report 20232752 (Version 1)
Quarter: 2021Q4

REPORT INFORMATION
  Report Type: Spontaneous
  Country: US (occurrence: None)
  Receive Date: 20211223
  Receipt Date: 20211223
  Transmission Date: 20220303
  Serious: Yes (Hospitalization, Other)
  Sender: FDA-Public Use
  Company Number: None

PATIENT
  Age: 71 Year
  Sex: Female

DRUGS (1)
  1. PROLIA [Suspect]
     Active Substance: DENOSUMAB
     Indication: Senile osteoporosis
     Dosage: OTHER FREQUENCY : EVRY 6 MONTHS;?
     Route: 058
     Dates: start: 20210815

REACTIONS (3)
  - Vertigo [None]
  - Bronchitis [None]
  - Herpes zoster [None]

NARRATIVE: CASE EVENT DATE: 20210819
